FAERS Safety Report 21439345 (Version 1)
Quarter: 2022Q4

REPORT INFORMATION
  Report Type: Spontaneous
  Country: US (occurrence: None)
  Receive Date: 20221009
  Receipt Date: 20221009
  Transmission Date: 20230113
  Serious: Yes (Life-Threatening, Hospitalization, Disabling, Other)
  Sender: FDA-Public Use
  Company Number: None

PATIENT
  Age: 32 Year
  Sex: Male
  Weight: 99.79 kg

DRUGS (7)
  1. FLUVOXAMINE [Suspect]
     Active Substance: FLUVOXAMINE
     Indication: Obsessive-compulsive disorder
     Dosage: FREQUENCY : TWICE A DAY;?
     Route: 048
  2. FLUVOXAMINE [Concomitant]
     Active Substance: FLUVOXAMINE
  3. LAMICTAL XR [Concomitant]
     Active Substance: LAMOTRIGINE
  4. CLONAZEPAM [Concomitant]
     Active Substance: CLONAZEPAM
  5. SYNTHROID [Concomitant]
     Active Substance: LEVOTHYROXINE SODIUM
  6. ATENOLOL [Concomitant]
     Active Substance: ATENOLOL
  7. VITAMIN D [Concomitant]
     Active Substance: VITAMIN D NOS

REACTIONS (11)
  - Mental disorder [None]
  - Crying [None]
  - Arrhythmia [None]
  - Paraesthesia [None]
  - Dementia [None]
  - Postural orthostatic tachycardia syndrome [None]
  - Dehydration [None]
  - Weight decreased [None]
  - Blood urine present [None]
  - Anisocoria [None]
  - Derealisation [None]

NARRATIVE: CASE EVENT DATE: 20130501
